FAERS Safety Report 4691723-8 (Version None)
Quarter: 2005Q2

REPORT INFORMATION
  Report Type: 
  Country: None (occurrence: None)
  Receive Date: 20050616
  Receipt Date: 20050607
  Transmission Date: 20051028
  Serious: Yes (Other)
  Sender: FDA-Public Use
  Company Number: 200515497GDDC

PATIENT
  Age: 77 Year
  Sex: Male

DRUGS (4)
  1. FRUSEMIDE [Suspect]
     Indication: CARDIAC FAILURE CONGESTIVE
  2. AMIODARONE [Suspect]
  3. WARFARIN SODIUM [Suspect]
     Indication: ARRHYTHMIA
  4. DAKTARIN ORAL GEL [Suspect]
     Indication: CANDIDIASIS
     Route: 061
     Dates: start: 20011023, end: 20011101

REACTIONS (1)
  - PROTHROMBIN TIME SHORTENED [None]
